FAERS Safety Report 7996656-7 (Version None)
Quarter: 2011Q4

REPORT INFORMATION
  Report Type: 
  Country: None (occurrence: None)
  Receive Date: 20111123
  Receipt Date: 20111017
  Transmission Date: 20120403
  Serious: No
  Sender: FDA-Public Use
  Company Number: 337632

PATIENT
  Age: 72 Year
  Sex: Female

DRUGS (3)
  1. METFORMIN HCL [Concomitant]
  2. LANTUS [Concomitant]
  3. VICTOZA [Suspect]
     Indication: TYPE 2 DIABETES MELLITUS
     Dosage: 1.8 MG, QD, SUBCUTANEOUS
     Route: 058
     Dates: start: 20110301

REACTIONS (4)
  - DECREASED APPETITE [None]
  - DYSGEUSIA [None]
  - WEIGHT DECREASED [None]
  - NAUSEA [None]
